FAERS Safety Report 9072496 (Version 1)
Quarter: 2013Q1

REPORT INFORMATION
  Report Type: Report from Study
  Country: US (occurrence: US)
  Receive Date: 20130129
  Receipt Date: 20130129
  Transmission Date: 20140127
  Serious: No
  Sender: FDA-Public Use
  Company Number: US-ABBOTT-12P-163-0920601-00

PATIENT
  Age: 64 Year
  Sex: Female

DRUGS (11)
  1. HUMIRA 40 MG/0.8 ML PEN [Suspect]
     Indication: PSORIASIS
     Dates: start: 20120124
  2. PROPRANOLOL LA [Concomitant]
     Indication: TREMOR
     Dosage: 60 MG DAILY
  3. SYMBICORT [Concomitant]
     Indication: ASTHMA
     Dosage: 80/4.5 AT BEDTIME
  4. SINGULAIR [Concomitant]
     Indication: ASTHMA
     Dosage: AT BEDTIME
  5. CITRACAL CALCIUM [Concomitant]
     Indication: PRODUCT USED FOR UNKNOWN INDICATION
     Dosage: 3 TABS DAILY
  6. ASPIRIN [Concomitant]
     Indication: PRODUCT USED FOR UNKNOWN INDICATION
     Dosage: 81 MG DAILY
  7. MULTIVITAMIN [Concomitant]
     Indication: PRODUCT USED FOR UNKNOWN INDICATION
     Dosage: DAILY
  8. TURMERIC [Concomitant]
     Indication: PSORIASIS
     Dosage: 1000 MG DAILY
  9. FISH OIL [Concomitant]
     Indication: BLOOD CHOLESTEROL
  10. RITALIN [Concomitant]
     Indication: ATTENTION DEFICIT/HYPERACTIVITY DISORDER
     Dosage: 10 MG DAILY
  11. RITALIN [Concomitant]
     Dosage: 40 MG DAILY
     Dates: start: 20120330

REACTIONS (1)
  - Injection site bruising [Recovered/Resolved]
